FAERS Safety Report 5771242-8 (Version None)
Quarter: 2008Q2

REPORT INFORMATION
  Report Type: 
  Country: None (occurrence: None)
  Receive Date: 20080613
  Receipt Date: 20080523
  Transmission Date: 20081010
  Serious: No
  Sender: FDA-Public Use
  Company Number: US-ABBOTT-08P-163-0454742-00

PATIENT
  Sex: Female
  Weight: 90.8 kg

DRUGS (13)
  1. HUMIRA [Suspect]
     Indication: CROHN'S DISEASE
     Route: 058
     Dates: start: 20070915
  2. INSULIN GLARGINE [Concomitant]
     Indication: DIABETES MELLITUS
     Route: 058
  3. REGULAR INSULIN [Concomitant]
     Indication: DIABETES MELLITUS
     Route: 058
  4. CETIRIZINE HYDROCHLORIDE [Concomitant]
     Indication: HYPERSENSITIVITY
     Route: 048
  5. SALBUTAMOL SULFATE [Concomitant]
     Indication: ASTHMA
     Route: 055
  6. TOPIRAMATE [Concomitant]
     Indication: MIGRAINE
     Route: 048
  7. HYOSCYAMINE SULFATE [Concomitant]
     Indication: ABDOMINAL DISCOMFORT
     Route: 048
  8. OMEPRAZOLE [Concomitant]
     Indication: CROHN'S DISEASE
     Route: 048
  9. AZELASTINE HCL [Concomitant]
     Indication: SEASONAL ALLERGY
     Route: 048
  10. LOPERAMIDE HYDROCHLORIDE [Concomitant]
     Indication: DIARRHOEA
     Route: 048
  11. EYE DROPS [Concomitant]
     Indication: SEASONAL ALLERGY
  12. EPINEPHRINE BITARTRATE [Concomitant]
     Indication: ANAPHYLACTIC REACTION
     Route: 058
  13. DETROL LA [Concomitant]
     Indication: URINARY INCONTINENCE
     Route: 058

REACTIONS (7)
  - ABDOMINAL PAIN UPPER [None]
  - CROHN'S DISEASE [None]
  - DRUG EFFECT DECREASED [None]
  - FREQUENT BOWEL MOVEMENTS [None]
  - PRURITUS [None]
  - RASH MACULAR [None]
  - SCAR [None]
